FAERS Safety Report 4660293-2 (Version None)
Quarter: 2005Q2

REPORT INFORMATION
  Report Type: 
  Country: None (occurrence: None)
  Receive Date: 20050511
  Receipt Date: 20050511
  Transmission Date: 20051028
  Serious: Yes (Hospitalization)
  Sender: FDA-Public Use
  Company Number: None

PATIENT
  Age: 34 Year
  Sex: Female

DRUGS (3)
  1. TRILEPTAL [Suspect]
     Dates: start: 20050101
  2. LAMICTAL [Concomitant]
  3. FLAGYL [Concomitant]

REACTIONS (1)
  - RASH PRURITIC [None]
